FAERS Safety Report 5999983-8 (Version None)
Quarter: 2008Q4

REPORT INFORMATION
  Report Type: 
  Country: None (occurrence: None)
  Receive Date: 20081211
  Receipt Date: 20081125
  Transmission Date: 20090506
  Serious: Yes (Hospitalization)
  Sender: FDA-Public Use
  Company Number: US-2008-00025

PATIENT
  Sex: Female

DRUGS (3)
  1. SERTRALINE HCL [Suspect]
     Dosage: 3 MONTHS OF MONOTHERAPY AT 50MG/DAY, 20-50 MG/DAY, ORAL
     Route: 048
     Dates: start: 20020801, end: 20021101
  2. TRAZODONE [Suspect]
     Dosage: 150 MG/DAY (DURATION UNCLEAR)
  3. RISPERIDONE [Suspect]
     Dosage: 2 MG/DAY (DURATION UNCLEAR)

REACTIONS (8)
  - BLOOD PROLACTIN INCREASED [None]
  - CHEST PAIN [None]
  - EXERCISE LACK OF [None]
  - JOINT SWELLING [None]
  - OSTEOPOROSIS [None]
  - PATHOLOGICAL FRACTURE [None]
  - RESPIRATORY DISTRESS [None]
  - RIB FRACTURE [None]
